FAERS Safety Report 4680359-0 (Version None)
Quarter: 2005Q2

REPORT INFORMATION
  Report Type: 
  Country: None (occurrence: None)
  Receive Date: 20050531
  Receipt Date: 20050214
  Transmission Date: 20051028
  Serious: No
  Sender: FDA-Public Use
  Company Number: WAES 0502USA01874

PATIENT
  Age: 86 Year
  Sex: Female

DRUGS (2)
  1. ZETIA [Suspect]
     Dosage: 10 MG/DAILY/ PO
     Route: 048
  2. THERAPY UNSPECIFIED [Concomitant]

REACTIONS (3)
  - LIP DRY [None]
  - LIP EXFOLIATION [None]
  - SWELLING FACE [None]
